FAERS Safety Report 19644214 (Version 1)
Quarter: 2021Q3

REPORT INFORMATION
  Report Type: Spontaneous
  Country: US (occurrence: US)
  Receive Date: 20210801
  Receipt Date: 20210801
  Transmission Date: 20211014
  Serious: No
  Sender: FDA-Public Use
  Company Number: US-ORGANON-O2107USA000859

PATIENT
  Age: 37 Year
  Sex: Female
  Weight: 68.48 kg

DRUGS (2)
  1. NEXPLANON [Suspect]
     Active Substance: ETONOGESTREL
     Dosage: 1 ROD IN LEFT ARM
     Dates: start: 20210708, end: 20210708
  2. NEXPLANON [Suspect]
     Active Substance: ETONOGESTREL
     Dosage: 1 ROD IN THE LEFT ARM
     Dates: start: 20210708, end: 20210708

REACTIONS (3)
  - Complication of device insertion [Unknown]
  - Complication of device insertion [Unknown]
  - Product quality issue [Unknown]

NARRATIVE: CASE EVENT DATE: 20210708
